FAERS Safety Report 9455602 (Version 2)
Quarter: 2014Q1

REPORT INFORMATION
  Report Type: Spontaneous
  Country: US (occurrence: US)
  Receive Date: 20130813
  Receipt Date: 20140211
  Transmission Date: 20141002
  Serious: Yes (Hospitalization, Other)
  Sender: FDA-Public Use
  Company Number: US-PFIZER INC-2013234273

PATIENT
  Age: 63 Year
  Sex: Female
  Weight: 86.17 kg

DRUGS (7)
  1. LYRICA [Suspect]
     Indication: FIBROMYALGIA
     Dosage: 25 MG, 2X/DAY
     Route: 048
     Dates: start: 2008
  2. LYRICA [Suspect]
     Indication: NEUROPATHY PERIPHERAL
  3. LYRICA [Suspect]
     Indication: GOUT
  4. LYRICA [Suspect]
     Indication: DIABETIC NEUROPATHY
  5. LYRICA [Suspect]
     Indication: NEURALGIA
  6. VERAPAMIL [Concomitant]
     Indication: BLOOD PRESSURE ABNORMAL
     Dosage: 180 MG DAILY
  7. CLONIDINE [Concomitant]
     Indication: BLOOD PRESSURE ABNORMAL
     Dosage: 0.3 MG, 2X/DAY

REACTIONS (5)
  - Off label use [Unknown]
  - Subdural haematoma [Unknown]
  - Coma [Recovered/Resolved]
  - Fall [Unknown]
  - Therapeutic response unexpected [Unknown]
